FAERS Safety Report 23892800 (Version 1)
Quarter: 2024Q2

REPORT INFORMATION
  Report Type: Spontaneous
  Country: US (occurrence: US)
  Receive Date: 20240524
  Receipt Date: 20240524
  Transmission Date: 20240716
  Serious: No
  Sender: FDA-Public Use
  Company Number: US-MIMS-BCONMC-3963

PATIENT
  Age: 18 Year
  Sex: Male
  Weight: 67.574 kg

DRUGS (1)
  1. INSULIN GLARGINE [Suspect]
     Active Substance: INSULIN GLARGINE
     Indication: Cystic fibrosis related diabetes
     Dosage: 13 UNITS/ML, QD
     Route: 058
     Dates: start: 202401

REACTIONS (1)
  - Device delivery system issue [Unknown]
